FAERS Safety Report 24823507 (Version 1)
Quarter: 2025Q1

REPORT INFORMATION
  Report Type: Spontaneous
  Country: CN (occurrence: CN)
  Receive Date: 20250109
  Receipt Date: 20250109
  Transmission Date: 20250409
  Serious: Yes (Other)
  Sender: ALKEM
  Company Number: CN-ALKEM LABORATORIES LIMITED-CN-ALKEM-2024-19805

PATIENT
  Age: 37 Year
  Sex: Female

DRUGS (1)
  1. METHADONE HYDROCHLORIDE [Suspect]
     Active Substance: METHADONE HYDROCHLORIDE
     Indication: Dysmenorrhoea
     Route: 065

REACTIONS (3)
  - Libido decreased [Unknown]
  - Anorgasmia [Unknown]
  - Sexual activity decreased [Unknown]
